FAERS Safety Report 4662096-1 (Version None)
Quarter: 2005Q2

REPORT INFORMATION
  Report Type: 
  Country: None (occurrence: None)
  Receive Date: 20050516
  Receipt Date: 20050502
  Transmission Date: 20051028
  Serious: Yes (Other)
  Sender: FDA-Public Use
  Company Number: PHHO2005BR06966

PATIENT
  Age: 13 Year
  Sex: Male
  Weight: 60 kg

DRUGS (4)
  1. RITALIN [Suspect]
     Indication: ATTENTION DEFICIT/HYPERACTIVITY DISORDER
     Route: 048
     Dates: start: 20040101
  2. RITALIN LA [Suspect]
     Indication: ATTENTION DEFICIT/HYPERACTIVITY DISORDER
     Route: 048
  3. RITALIN LA [Suspect]
     Route: 048
  4. SYNTHROID [Concomitant]
     Indication: HYPOTHYROIDISM

REACTIONS (15)
  - ANOREXIA [None]
  - ANXIETY [None]
  - DEPRESSION [None]
  - DIZZINESS [None]
  - GROWTH RETARDATION [None]
  - HEADACHE [None]
  - HYPERHIDROSIS [None]
  - HYPERTENSION [None]
  - IRRITABILITY [None]
  - ORAL PRURITUS [None]
  - RETCHING [None]
  - SLEEP DISORDER [None]
  - SUICIDE ATTEMPT [None]
  - TACHYCARDIA [None]
  - WEIGHT DECREASED [None]
